FAERS Safety Report 23333463 (Version 1)
Quarter: 2023Q4

REPORT INFORMATION
  Report Type: Report from Study
  Country: CA (occurrence: CA)
  Receive Date: 20231222
  Receipt Date: 20231222
  Transmission Date: 20240109
  Serious: Yes (Other)
  Sender: FDA-Public Use
  Company Number: CA-GILEAD-2023-0656091

PATIENT
  Age: 66 Year
  Sex: Female

DRUGS (9)
  1. SACITUZUMAB GOVITECAN-HZIY [Suspect]
     Active Substance: SACITUZUMAB GOVITECAN-HZIY
     Indication: Hormone receptor positive HER2 negative breast cancer
     Dosage: UNK
     Route: 042
     Dates: start: 20231212
  2. ACETAMINOPHEN [Concomitant]
     Active Substance: ACETAMINOPHEN
     Dosage: 650 MG PO (PRIOR TRODELVY INFUSION)
  3. PANTO A [Concomitant]
     Active Substance: ACETAMINOPHEN\CHLORPHENIRAMINE MALEATE\GUAIFENESIN
     Dosage: 40 MG PO
  4. DVITAL [Concomitant]
     Dosage: 2000 IU PO
  5. ACETAMINOPHEN [Concomitant]
     Active Substance: ACETAMINOPHEN
     Dosage: 500 MG PO
  6. CODEINE BERK [Concomitant]
     Dosage: 1 PO
  7. CLINAZAL [Concomitant]
  8. ZOPICLONE [Concomitant]
     Active Substance: ZOPICLONE
  9. METOCLOPRAMIDE HYDROCHLORIDE [Concomitant]
     Active Substance: METOCLOPRAMIDE HYDROCHLORIDE

REACTIONS (1)
  - Neutrophil count abnormal [Not Recovered/Not Resolved]
